FAERS Safety Report 9123274 (Version 1)
Quarter: 2013Q1

REPORT INFORMATION
  Report Type: Spontaneous
  Country: US (occurrence: US)
  Receive Date: 20130227
  Receipt Date: 20130227
  Transmission Date: 20140127
  Serious: No
  Sender: FDA-Public Use
  Company Number: US-VERTEX PHARMACEUTICALS INC.-2013-002646

PATIENT
  Age: 62 Year
  Sex: Male
  Weight: 55 kg

DRUGS (4)
  1. INCIVEK [Suspect]
     Indication: HEPATITIS C
     Dosage: 750 MG, TID
     Route: 048
     Dates: start: 20130111, end: 20130207
  2. PEGASYS [Suspect]
     Indication: HEPATITIS C
     Dosage: 180 ?G, QW
     Route: 058
     Dates: start: 20130111, end: 20130207
  3. RIBAVIRIN [Suspect]
     Indication: HEPATITIS C
     Dosage: 2 PILLS IN AM, 1 PILL IN PM
     Route: 048
     Dates: start: 20130111
  4. RIBAVIRIN [Suspect]
     Dosage: 1 DF, BID
     Route: 048
     Dates: start: 201301, end: 20130207

REACTIONS (5)
  - Weight decreased [Not Recovered/Not Resolved]
  - Anaemia [Not Recovered/Not Resolved]
  - Diarrhoea [Not Recovered/Not Resolved]
  - Vomiting [Not Recovered/Not Resolved]
  - Nausea [Not Recovered/Not Resolved]
